FAERS Safety Report 16042555 (Version 1)
Quarter: 2019Q1

REPORT INFORMATION
  Report Type: Report from Study
  Country: GB (occurrence: GB)
  Receive Date: 20190306
  Receipt Date: 20190306
  Transmission Date: 20190418
  Serious: Yes (Other)
  Sender: FDA-Public Use
  Company Number: GB-ASPEN-GLO2018GB009898

PATIENT
  Age: 80 Year
  Sex: Male

DRUGS (3)
  1. NINLARO [Suspect]
     Active Substance: IXAZOMIB CITRATE
     Indication: PLASMA CELL MYELOMA
     Dosage: UNK
     Route: 048
  2. DEXAMETHASONE. [Suspect]
     Active Substance: DEXAMETHASONE
     Indication: PRODUCT USED FOR UNKNOWN INDICATION
     Dosage: UNK
     Route: 065
  3. REVLIMID [Suspect]
     Active Substance: LENALIDOMIDE
     Indication: PRODUCT USED FOR UNKNOWN INDICATION
     Dosage: UNK
     Route: 065

REACTIONS (9)
  - Pruritus [Recovered/Resolved]
  - Nausea [Recovering/Resolving]
  - Ear congestion [Unknown]
  - Neuropathy peripheral [Unknown]
  - Body temperature decreased [Recovered/Resolved]
  - Fatigue [Unknown]
  - Lip pain [Unknown]
  - Dizziness [Unknown]
  - Nasopharyngitis [Recovered/Resolved]
